FAERS Safety Report 26057347 (Version 1)
Quarter: 2025Q4

REPORT INFORMATION
  Report Type: Spontaneous
  Country: US (occurrence: US)
  Receive Date: 20251118
  Receipt Date: 20251118
  Transmission Date: 20260118
  Serious: No
  Sender: LABORATOIRES SERB
  Company Number: US-SERB S.A.S.-2188759

PATIENT
  Age: 5 Year

DRUGS (1)
  1. XURIDEN [Suspect]
     Active Substance: URIDINE TRIACETATE
     Indication: Product used for unknown indication

REACTIONS (4)
  - Gastrointestinal disorder [Unknown]
  - Wrong technique in product usage process [Unknown]
  - Product use issue [Unknown]
  - Device occlusion [Unknown]
